FAERS Safety Report 8154767-X (Version None)
Quarter: 2012Q1

REPORT INFORMATION
  Report Type: 
  Country: None (occurrence: None)
  Receive Date: 20120221
  Receipt Date: 20120209
  Transmission Date: 20120608
  Serious: Yes (Other)
  Sender: FDA-Public Use
  Company Number: PHHY2012DE013281

PATIENT
  Sex: Female

DRUGS (6)
  1. MYCOPHENOLATE MOFETIL [Suspect]
     Indication: BLOOD IMMUNOGLOBULIN D INCREASED
     Dosage: 1.44 G/DAY
  2. PREDNISOLONE [Concomitant]
     Dosage: UNK UKN, UNK
  3. COLCHICINE [Concomitant]
     Dosage: UNK UKN, UNK
  4. ABATACEPT [Concomitant]
     Dosage: UNK UKN, UNK
  5. VALACICLOVIR [Concomitant]
     Dosage: UNK UKN, UNK
  6. NAPROXEN [Concomitant]
     Dosage: UNK UKN, UNK

REACTIONS (2)
  - PREMATURE LABOUR [None]
  - MATERNAL EXPOSURE DURING PREGNANCY [None]
